FAERS Safety Report 10144306 (Version 2)
Quarter: 2014Q3

REPORT INFORMATION
  Report Type: Spontaneous
  Country: US (occurrence: US)
  Receive Date: 20140430
  Receipt Date: 20140901
  Transmission Date: 20150326
  Serious: Yes (Life-Threatening, Hospitalization)
  Sender: FDA-Public Use
  Company Number: US-ASTRAZENECA-2014SE29179

PATIENT
  Age: 44 Year
  Sex: Female

DRUGS (2)
  1. LISINOPRIL. [Suspect]
     Active Substance: LISINOPRIL
     Dosage: UNKNOWN
     Route: 048
  2. ATENOLOL/CHLORTHALIDONE [Suspect]
     Active Substance: ATENOLOL\CHLORTHALIDONE
     Dosage: 50+25 MG 90 TABLETS (4.5 G ATENOLOL/2.25 G CHLORTHALIDONE)
     Route: 048

REACTIONS (8)
  - Renal failure [Recovered/Resolved]
  - Hypotension [Recovering/Resolving]
  - Circulatory collapse [Recovering/Resolving]
  - Intentional product misuse [Recovering/Resolving]
  - Overdose [Recovering/Resolving]
  - Acute respiratory distress syndrome [Recovering/Resolving]
  - Bradycardia [Recovering/Resolving]
  - Coma [Recovering/Resolving]
